FAERS Safety Report 7915117-4 (Version None)
Quarter: 2011Q4

REPORT INFORMATION
  Report Type: 
  Country: None (occurrence: None)
  Receive Date: 20111115
  Receipt Date: 20111108
  Transmission Date: 20120403
  Serious: Yes (Hospitalization)
  Sender: FDA-Public Use
  Company Number: IT-GILEAD-2011-0045884

PATIENT
  Sex: Male

DRUGS (2)
  1. RANOLAZINE [Suspect]
     Indication: MYOCARDIAL ISCHAEMIA
     Dosage: 750 MG, QD
     Route: 048
     Dates: start: 20110601, end: 20110926
  2. ALLOPURINOL [Suspect]
     Indication: HYPERURICAEMIA
     Dosage: 150 MG, UNK
     Dates: start: 20110101

REACTIONS (2)
  - ECZEMA [None]
  - PRURITUS [None]
